FAERS Safety Report 6477722-4 (Version None)
Quarter: 2009Q4

REPORT INFORMATION
  Report Type: 
  Country: None (occurrence: None)
  Receive Date: 20091203
  Receipt Date: 20091203
  Transmission Date: 20100525
  Serious: No
  Sender: FDA-Public Use
  Company Number: None

PATIENT
  Sex: Female
  Weight: 47.6277 kg

DRUGS (2)
  1. WELLBUTRIN XL [Suspect]
     Indication: DEPRESSION
     Dosage: 150 XL ONCE A DAY PO
     Route: 048
     Dates: start: 20091026, end: 20091201
  2. WELLBUTRIN XL [Suspect]
     Indication: DEPRESSION
     Dosage: 300 XL ONCE A DAY PO
     Route: 048
     Dates: start: 20091026, end: 20091201

REACTIONS (3)
  - DEPRESSION [None]
  - PRODUCT SUBSTITUTION ISSUE [None]
  - SUICIDAL IDEATION [None]
